FAERS Safety Report 4439591-3 (Version None)
Quarter: 2004Q3

REPORT INFORMATION
  Report Type: 
  Country: None (occurrence: None)
  Receive Date: 20040830
  Receipt Date: 20040826
  Transmission Date: 20050211
  Serious: Yes (Disabling, Other)
  Sender: FDA-Public Use
  Company Number: 2004-07-0716

PATIENT
  Age: 50 Year
  Sex: Male
  Weight: 81.6475 kg

DRUGS (3)
  1. PEG-INTRON [Suspect]
     Indication: HEPATITIS C
     Dosage: 210MCG QWK SUBCUTANEOUS
     Route: 058
     Dates: start: 20010301, end: 20021201
  2. REBETOL [Suspect]
     Indication: HEPATITIS C
     Dosage: 600 MG BID ORAL
     Route: 048
     Dates: start: 20010301, end: 20021201
  3. EFFEXOR XR [Concomitant]

REACTIONS (2)
  - COMPRESSION FRACTURE [None]
  - OSTEOPOROSIS [None]
